FAERS Safety Report 9714127 (Version 1)
Quarter: 2013Q4

REPORT INFORMATION
  Report Type: Spontaneous
  Country: US (occurrence: US)
  Receive Date: 20131126
  Receipt Date: 20131126
  Transmission Date: 20140711
  Serious: No
  Sender: FDA-Public Use
  Company Number: US-GILEAD-2008-0018987

PATIENT
  Age: 60 Year
  Sex: Male

DRUGS (10)
  1. LETAIRIS [Suspect]
     Indication: PULMONARY ARTERIAL HYPERTENSION
     Route: 048
  2. AMLODIPINE [Concomitant]
     Dates: start: 20080820
  3. WARFARIN [Concomitant]
     Dates: start: 20080820
  4. PRAVASTATIN [Concomitant]
     Dates: start: 20080820
  5. ASA [Concomitant]
     Dates: start: 20080820
  6. LYRICA [Concomitant]
     Dates: start: 20080820
  7. SMZ [Concomitant]
     Dates: start: 20080820
  8. CELLCEPT [Concomitant]
     Dates: start: 20080820
  9. TERAZOSIN [Concomitant]
     Dates: start: 20080820
  10. OMEPRAZOLE [Concomitant]
     Dates: start: 20080820

REACTIONS (1)
  - Joint swelling [None]
